FAERS Safety Report 6057506-1 (Version None)
Quarter: 2009Q1

REPORT INFORMATION
  Report Type: 
  Country: None (occurrence: None)
  Receive Date: 20090126
  Receipt Date: 20090112
  Transmission Date: 20090719
  Serious: Yes (Hospitalization)
  Sender: FDA-Public Use
  Company Number: KV200900069

PATIENT
  Age: 87 Year
  Sex: Female
  Weight: 73 kg

DRUGS (7)
  1. ISOSORBIDE MONONITRATE [Suspect]
     Indication: HEART RATE IRREGULAR
     Dosage: 60 MG, QD,
     Dates: start: 20050101
  2. NEXIUM [Concomitant]
  3. SIMVASTATIN [Concomitant]
  4. MELOXICAM [Concomitant]
  5. DIOVAN HCT [Concomitant]
  6. PLAVIX [Concomitant]
  7. MECLIZINE /00072801/ (MECLOZINE) [Concomitant]

REACTIONS (7)
  - BLOOD PRESSURE FLUCTUATION [None]
  - CONVULSION [None]
  - DIZZINESS [None]
  - FALL [None]
  - HEADACHE [None]
  - MUSCLE SPASMS [None]
  - PRODUCT QUALITY ISSUE [None]
